FAERS Safety Report 7816726 (Version 2)
Quarter: 2013Q3

REPORT INFORMATION
  Report Type: Spontaneous
  Country: US (occurrence: US)
  Receive Date: 20110217
  Receipt Date: 20130812
  Transmission Date: 20140515
  Serious: No
  Sender: FDA-Public Use
  Company Number: US-PFIZER INC-2010046617

PATIENT
  Age: 90 Year
  Sex: Female
  Weight: 45.8 kg

DRUGS (4)
  1. XALATAN [Suspect]
     Indication: INTRAOCULAR PRESSURE TEST
     Dosage: UNK
     Route: 047
     Dates: start: 2007
  2. XALEASE [Suspect]
  3. DICLOFENAC [Concomitant]
     Indication: HYPOTONIA
     Dosage: UNK
  4. DORZOLAMIDE [Concomitant]
     Dosage: UNK
     Route: 047

REACTIONS (3)
  - Drug dose omission [Unknown]
  - Product quality issue [Unknown]
  - Visual field tests abnormal [Unknown]
